FAERS Safety Report 7559886-4 (Version None)
Quarter: 2011Q2

REPORT INFORMATION
  Report Type: 
  Country: None (occurrence: None)
  Receive Date: 20110621
  Receipt Date: 20110616
  Transmission Date: 20111010
  Serious: Yes (Life-Threatening, Hospitalization, Other)
  Sender: FDA-Public Use
  Company Number: US-ASTRAZENECA-2010SE60087

PATIENT
  Age: 48 Year
  Sex: Female

DRUGS (2)
  1. METHADONE HCL [Concomitant]
  2. NEXIUM [Suspect]
     Route: 048

REACTIONS (8)
  - METASTASES TO LIVER [None]
  - SPINAL OPERATION [None]
  - AMNESIA [None]
  - DEMENTIA [None]
  - GASTROINTESTINAL DISORDER [None]
  - COMPUTERISED TOMOGRAM [None]
  - CARDIAC ARREST [None]
  - MALAISE [None]
